FAERS Safety Report 5023384-2 (Version None)
Quarter: 2006Q2

REPORT INFORMATION
  Report Type: 
  Country: None (occurrence: None)
  Receive Date: 20060428
  Receipt Date: 20051206
  Transmission Date: 20061013
  Serious: No
  Sender: FDA-Public Use
  Company Number: 28246

PATIENT
  Age: 68 Year
  Sex: Male

DRUGS (2)
  1. ALDARA [Suspect]
     Indication: ACTINIC KERATOSIS
     Dosage: (1 SACHET, 3 IN 1 WEEK(S)), TOPICAL
     Route: 061
     Dates: start: 20050601, end: 20050801
  2. FLUOXETINE [Concomitant]

REACTIONS (1)
  - SQUAMOUS CELL CARCINOMA [None]
